FAERS Safety Report 7204314-1 (Version None)
Quarter: 2010Q4

REPORT INFORMATION
  Report Type: 
  Country: None (occurrence: None)
  Receive Date: 20101230
  Receipt Date: 20101019
  Transmission Date: 20110411
  Serious: Yes (Hospitalization)
  Sender: FDA-Public Use
  Company Number: AT-ASTRAZENECA-2010SE45642

PATIENT
  Age: 23626 Day
  Sex: Male

DRUGS (25)
  1. XYLOCAINE [Suspect]
     Route: 065
     Dates: start: 20100910, end: 20100911
  2. PRIDAX [Suspect]
     Route: 051
     Dates: start: 20100910, end: 20100917
  3. PERFALGAN [Suspect]
     Route: 051
     Dates: start: 20100910, end: 20100917
  4. TRAMAL [Suspect]
     Route: 051
     Dates: start: 20100910, end: 20100917
  5. DIPROPHOS [Suspect]
     Route: 065
     Dates: start: 20100910, end: 20100911
  6. DAPAGLIFLOZIN CODE NOT BROKEN [Suspect]
     Indication: TYPE 2 DIABETES MELLITUS
     Route: 048
  7. CRESTOR [Concomitant]
     Indication: HYPERLIPIDAEMIA
     Route: 048
  8. EUTHYROX [Concomitant]
     Indication: HYPOTHYROIDISM
     Route: 048
  9. SEDACORON [Concomitant]
     Indication: ATRIAL FIBRILLATION
     Route: 048
  10. ASPIRIN [Concomitant]
     Indication: ANTICOAGULANT THERAPY
     Route: 048
  11. PANTOLOC [Concomitant]
     Indication: PROPHYLAXIS AGAINST GASTROINTESTINAL ULCER
     Route: 048
  12. CLOPIDOGREL [Concomitant]
     Indication: ANTICOAGULANT THERAPY
     Route: 048
  13. BETASERC [Concomitant]
     Indication: VERTIGO
     Route: 048
  14. ALNA RETARD [Concomitant]
     Indication: BENIGN PROSTATIC HYPERPLASIA
     Route: 048
  15. NOOTROPIL [Concomitant]
     Indication: TRANSIENT ISCHAEMIC ATTACK
     Route: 048
  16. TRAMUNDAL [Concomitant]
     Indication: SCIATICA
     Route: 048
  17. MAGNOSOLV GRANULAT [Concomitant]
     Indication: ISCHAEMIC HEART DISEASE PROPHYLAXIS
     Route: 048
  18. NEURONTIN [Concomitant]
     Indication: DIABETIC NEUROPATHY
     Route: 048
  19. LANTUS PEN [Concomitant]
     Indication: TYPE 2 DIABETES MELLITUS
     Dosage: 30 DAILY
     Dates: start: 20081204, end: 20100902
  20. LANTUS PEN [Concomitant]
     Dosage: 22 DAILY
     Dates: start: 20100903
  21. NOVORAPID [Concomitant]
     Indication: TYPE 2 DIABETES MELLITUS
     Dosage: 37
     Dates: start: 20091126, end: 20100902
  22. NOVORAPID [Concomitant]
     Dates: start: 20100903
  23. LASIX [Concomitant]
     Indication: HYPERTENSION
     Route: 048
  24. LASIX [Concomitant]
     Dosage: AS REQUIRED
     Route: 048
  25. ATACAND [Concomitant]
     Indication: HYPERTENSION
     Route: 048

REACTIONS (1)
  - OSTEOARTHRITIS [None]
